FAERS Safety Report 7303353-X (Version None)
Quarter: 2011Q1

REPORT INFORMATION
  Report Type: 
  Country: None (occurrence: None)
  Receive Date: 20110221
  Receipt Date: 20110210
  Transmission Date: 20110831
  Serious: Yes (Other)
  Sender: FDA-Public Use
  Company Number: US-NOVOPROD-320265

PATIENT
  Sex: Female
  Weight: 84.807 kg

DRUGS (3)
  1. VAGIFEM [Suspect]
     Indication: VULVOVAGINAL DRYNESS
     Dosage: 25MCG
     Route: 067
     Dates: start: 20080213, end: 20101216
  2. VAGIFEM [Suspect]
     Indication: VULVOVAGINAL PRURITUS
  3. CLOBETASOL PROPIONATE [Concomitant]
     Indication: PRODUCT USED FOR UNKNOWN INDICATION
     Dosage: UNK

REACTIONS (2)
  - SUICIDAL IDEATION [None]
  - DEPRESSION [None]
